FAERS Safety Report 19596478 (Version 1)
Quarter: 2021Q3

REPORT INFORMATION
  Report Type: Report from Study
  Country: CA (occurrence: CA)
  Receive Date: 20210722
  Receipt Date: 20210722
  Transmission Date: 20211014
  Serious: Yes (Disabling)
  Sender: FDA-Public Use
  Company Number: CA-JNJFOC-A-NJ2020-202071

PATIENT
  Age: 57 Year
  Sex: Female
  Weight: 60.5 kg

DRUGS (13)
  1. IMODIUM [Concomitant]
     Active Substance: LOPERAMIDE HYDROCHLORIDE
  2. OPSUMIT [Suspect]
     Active Substance: MACITENTAN
     Indication: PULMONARY ARTERIAL HYPERTENSION
     Dosage: 10 MG, QD
     Route: 048
     Dates: start: 20190820
  3. IMOVANE [Concomitant]
     Active Substance: ZOPICLONE
  4. SYNTHROID [Concomitant]
     Active Substance: LEVOTHYROXINE SODIUM
  5. UPTRAVI [Suspect]
     Active Substance: SELEXIPAG
     Dosage: 1600 MCG, BID
     Route: 048
     Dates: start: 20200113
  6. UPTRAVI [Suspect]
     Active Substance: SELEXIPAG
     Dosage: 1000MCG AM/1000MCG AT LUNCH/1200MCG AT BEDTIME
     Route: 048
     Dates: start: 20200113
  7. ALDACTONE [Concomitant]
     Active Substance: SPIRONOLACTONE
  8. FUROSEMIDE. [Concomitant]
     Active Substance: FUROSEMIDE
  9. UPTRAVI [Suspect]
     Active Substance: SELEXIPAG
     Indication: PULMONARY ARTERIAL HYPERTENSION
     Dosage: 1000 MCG, TID
     Route: 048
     Dates: start: 20200113
  10. REVATIO [Concomitant]
     Active Substance: SILDENAFIL CITRATE
  11. GRAVOL [Concomitant]
     Active Substance: DIMENHYDRINATE
  12. XARELTO [Concomitant]
     Active Substance: RIVAROXABAN
  13. ACETAMINOPHEN. [Concomitant]
     Active Substance: ACETAMINOPHEN

REACTIONS (2)
  - Pain in extremity [Not Recovered/Not Resolved]
  - Off label use [Unknown]

NARRATIVE: CASE EVENT DATE: 202001
